FAERS Safety Report 18005019 (Version 1)
Quarter: 2020Q3

REPORT INFORMATION
  Report Type: Spontaneous
  Country: US (occurrence: US)
  Receive Date: 20200709
  Receipt Date: 20200709
  Transmission Date: 20201103
  Serious: Yes (Other)
  Sender: FDA-Public Use
  Company Number: US-AMERICAN REGENT INC-2020001389

PATIENT
  Sex: Female

DRUGS (15)
  1. FENTANYL. [Suspect]
     Active Substance: FENTANYL
     Indication: SEDATION
     Dosage: UNK
     Route: 042
  2. MIDAZOLAM. [Suspect]
     Active Substance: MIDAZOLAM
     Dosage: UNK
  3. PENTOBARBITAL. [Suspect]
     Active Substance: PENTOBARBITAL
     Indication: SEDATION
     Dosage: UNK
  4. METHADONE [Suspect]
     Active Substance: METHADONE HYDROCHLORIDE
     Indication: SEDATION
     Dosage: UNK, CONTINUOUS
     Route: 042
  5. CISATRACURIUM. [Suspect]
     Active Substance: CISATRACURIUM
     Dosage: UNK
  6. DEXMEDETOMIDINE HYDROCHLORIDE INJECTION (0517?0995?25) [Suspect]
     Active Substance: DEXMEDETOMIDINE HYDROCHLORIDE
     Indication: SEDATION
     Dosage: 1.5 MCG/KG/H
     Route: 042
  7. HYDROMORPHONE [Suspect]
     Active Substance: HYDROMORPHONE
     Indication: SEDATION
     Dosage: 0.03 MG/KG/H
     Route: 042
  8. CLONIDINE. [Suspect]
     Active Substance: CLONIDINE
     Indication: SEDATION
     Dosage: UNK, INTERMITTENT
  9. DEXMEDETOMIDINE HYDROCHLORIDE INJECTION (0517?0995?25) [Suspect]
     Active Substance: DEXMEDETOMIDINE HYDROCHLORIDE
     Dosage: UNK
  10. LORAZEPAM. [Suspect]
     Active Substance: LORAZEPAM
     Indication: SEDATION
     Dosage: UNK, CONTINUOUS
     Route: 042
  11. HYDROMORPHONE [Suspect]
     Active Substance: HYDROMORPHONE
     Dosage: UNK
  12. CISATRACURIUM. [Suspect]
     Active Substance: CISATRACURIUM
     Indication: SEDATION
     Dosage: 2 MCG/KG/MIN
     Route: 042
  13. MIDAZOLAM. [Suspect]
     Active Substance: MIDAZOLAM
     Indication: SEDATION
     Dosage: 0.21 MG/KG/H
     Route: 042
  14. KETAMINE [Suspect]
     Active Substance: KETAMINE
     Indication: SEDATION
     Dosage: UNK
  15. NALOXONE [Suspect]
     Active Substance: NALOXONE
     Indication: PRURITUS
     Dosage: LOW DOSE
     Route: 042

REACTIONS (2)
  - Delirium [Recovering/Resolving]
  - Product use issue [Unknown]
